FAERS Safety Report 21664227 (Version 3)
Quarter: 2023Q1

REPORT INFORMATION
  Report Type: Spontaneous
  Country: US (occurrence: US)
  Receive Date: 20221130
  Receipt Date: 20230131
  Transmission Date: 20230418
  Serious: No
  Sender: FDA-Public Use
  Company Number: US-BRISTOL-MYERS SQUIBB COMPANY-2022-144652

PATIENT
  Age: 73 Year
  Sex: Male

DRUGS (2)
  1. CAMZYOS [Suspect]
     Active Substance: MAVACAMTEN
     Indication: Hypertrophic cardiomyopathy
     Route: 048
     Dates: start: 20221020
  2. CAMZYOS [Suspect]
     Active Substance: MAVACAMTEN
     Dates: start: 20221227

REACTIONS (2)
  - Product dose omission issue [Unknown]
  - Prescribed overdose [Unknown]
